FAERS Safety Report 9881366 (Version 2)
Quarter: 2014Q1

REPORT INFORMATION
  Report Type: Spontaneous
  Country: JP (occurrence: JP)
  Receive Date: 20140207
  Receipt Date: 20140207
  Transmission Date: 20141002
  Serious: Yes (Life-Threatening, Hospitalization)
  Sender: FDA-Public Use
  Company Number: JP-SA-2011-08647

PATIENT
  Age: 71 Year
  Sex: Male

DRUGS (5)
  1. IMMUCYST [Suspect]
     Indication: BLADDER CANCER
     Route: 043
     Dates: start: 20110801, end: 20110815
  2. SITAGLIPTIN PHOSPHATE [Concomitant]
  3. GLIMEPIRIDE [Concomitant]
     Indication: DIABETES MELLITUS
  4. VOGLIBOSE [Concomitant]
     Indication: DIABETES MELLITUS
  5. INSULIN HUMAN [Concomitant]
     Dosage: 12 TO 16 UNITS/DAY) BEFORE EACH MEAL

REACTIONS (7)
  - Bovine tuberculosis [Recovered/Resolved]
  - Pyrexia [Recovered/Resolved]
  - Hepatic function abnormal [Recovered/Resolved]
  - Malaise [Recovered/Resolved]
  - Chest X-ray abnormal [Recovered/Resolved]
  - Decreased appetite [Recovered/Resolved]
  - Granulomatous liver disease [Recovered/Resolved]
